FAERS Safety Report 20538440 (Version 1)
Quarter: 2022Q1

REPORT INFORMATION
  Report Type: Spontaneous
  Country: US (occurrence: None)
  Receive Date: 20220301
  Receipt Date: 20220301
  Transmission Date: 20220423
  Serious: Yes (Other)
  Sender: FDA-Public Use
  Company Number: None

PATIENT
  Age: 51 Year
  Sex: Male

DRUGS (1)
  1. VIVITROL [Suspect]
     Active Substance: NALTREXONE
     Indication: Alcoholism
     Dosage: OTHER FREQUENCY : ONCE A MONTH (28D);?
     Route: 030
     Dates: start: 20220214

REACTIONS (4)
  - Musculoskeletal pain [None]
  - Gait inability [None]
  - Injection related reaction [None]
  - Pain in extremity [None]

NARRATIVE: CASE EVENT DATE: 20220214
